FAERS Safety Report 5567869-9 (Version None)
Quarter: 2007Q4

REPORT INFORMATION
  Report Type: 
  Country: None (occurrence: None)
  Receive Date: 20071220
  Receipt Date: 20071211
  Transmission Date: 20080405
  Serious: Yes (Hospitalization)
  Sender: FDA-Public Use
  Company Number: US-ELI_LILLY_AND_COMPANY-US200708001025

PATIENT
  Sex: Male
  Weight: 70.748 kg

DRUGS (3)
  1. ZYPREXA [Suspect]
     Dosage: 10 MG, UNK
     Dates: start: 20020910, end: 20050916
  2. ZYPREXA [Suspect]
     Dosage: 20 MG, UNK
     Dates: start: 20020910, end: 20050916
  3. ZYPREXA [Suspect]
     Dosage: 10 MG, UNK
     Dates: start: 20060201, end: 20070221

REACTIONS (7)
  - ABDOMINAL DISTENSION [None]
  - BLOOD TRIGLYCERIDES INCREASED [None]
  - CEREBROVASCULAR ACCIDENT [None]
  - HYPERGLYCAEMIA [None]
  - MYOCARDIAL INFARCTION [None]
  - TYPE 2 DIABETES MELLITUS [None]
  - WEIGHT INCREASED [None]
